FAERS Safety Report 10335572 (Version 2)
Quarter: 2014Q3

REPORT INFORMATION
  Report Type: Spontaneous
  Country: US (occurrence: US)
  Receive Date: 20140723
  Receipt Date: 20140723
  Transmission Date: 20150326
  Serious: No
  Sender: FDA-Public Use
  Company Number: US-UNITED THERAPEUTICS-UTC-046805

PATIENT
  Sex: Female
  Weight: 59.87 kg

DRUGS (3)
  1. REMODULIN [Suspect]
     Active Substance: TREPROSTINIL
     Dosage: 0.093 UG/KG/MIN
     Route: 058
     Dates: start: 20050825
  2. WARFARIN [Concomitant]
     Active Substance: WARFARIN
  3. LETAIRIS [Concomitant]
     Active Substance: AMBRISENTAN

REACTIONS (3)
  - Oedema peripheral [Recovered/Resolved]
  - Swelling [Recovering/Resolving]
  - Oedema [Unknown]
